FAERS Safety Report 5174598-2 (Version None)
Quarter: 2006Q4

REPORT INFORMATION
  Report Type: 
  Country: None (occurrence: None)
  Receive Date: 20061214
  Receipt Date: 20060615
  Transmission Date: 20070319
  Serious: No
  Sender: FDA-Public Use
  Company Number: US-AMGEN-KDL183269

PATIENT
  Sex: Male

DRUGS (2)
  1. ENBREL [Suspect]
     Indication: PSORIATIC ARTHROPATHY
     Route: 058
     Dates: start: 20030115
  2. METHOTREXATE [Concomitant]
     Dates: start: 19970101

REACTIONS (2)
  - ACCIDENTAL NEEDLE STICK [None]
  - NASOPHARYNGITIS [None]
